FAERS Safety Report 8171223-3 (Version None)
Quarter: 2012Q1

REPORT INFORMATION
  Report Type: 
  Country: None (occurrence: None)
  Receive Date: 20120228
  Receipt Date: 20120214
  Transmission Date: 20120608
  Serious: Yes (Hospitalization)
  Sender: FDA-Public Use
  Company Number: IL-MEDIMMUNE-MEDI-0015004

PATIENT
  Sex: Male
  Weight: 1.26 kg

DRUGS (2)
  1. SYNAGIS [Suspect]
     Dates: start: 20120201, end: 20120201
  2. SYNAGIS [Suspect]
     Dates: start: 20111201, end: 20120101

REACTIONS (3)
  - DYSPNOEA [None]
  - OXYGEN SATURATION DECREASED [None]
  - WHEEZING [None]
